FAERS Safety Report 21796767 (Version 2)
Quarter: 2023Q1

REPORT INFORMATION
  Report Type: Spontaneous
  Country: US (occurrence: US)
  Receive Date: 20221230
  Receipt Date: 20230110
  Transmission Date: 20230417
  Serious: No
  Sender: FDA-Public Use
  Company Number: US-SUNOVION-2022SUN003526AA

PATIENT
  Age: 73 Year
  Sex: Female

DRUGS (2)
  1. LUNESTA [Suspect]
     Active Substance: ESZOPICLONE
     Dosage: 3 MG, QD
     Route: 048
  2. ESZOPICLONE [Suspect]
     Active Substance: ESZOPICLONE
     Dosage: UNKNOWN
     Route: 048

REACTIONS (3)
  - Post-traumatic stress disorder [Unknown]
  - Drug ineffective [Unknown]
  - Insomnia [Unknown]
